FAERS Safety Report 5098643-8 (Version None)
Quarter: 2006Q3

REPORT INFORMATION
  Report Type: 
  Country: None (occurrence: None)
  Receive Date: 20060907
  Receipt Date: 20060823
  Transmission Date: 20061208
  Serious: Yes (Other)
  Sender: FDA-Public Use
  Company Number: GBWYE764523AUG06

PATIENT
  Age: 66 Year
  Sex: Female

DRUGS (3)
  1. ENBREL [Suspect]
     Indication: RHEUMATOID ARTHRITIS
     Route: 058
     Dates: start: 20060403, end: 20060407
  2. PARACETAMOL [Concomitant]
     Dosage: UNKNOWN
     Route: 048
  3. MYOCRISIN [Concomitant]
     Dosage: 20MG, FREQUENCY UNKNOWN
     Route: 030
     Dates: start: 20050401

REACTIONS (4)
  - ABDOMINAL PAIN [None]
  - OEDEMA PERIPHERAL [None]
  - PAIN [None]
  - SWELLING FACE [None]
